FAERS Safety Report 7834850-6 (Version None)
Quarter: 2011Q4

REPORT INFORMATION
  Report Type: 
  Country: None (occurrence: None)
  Receive Date: 20111024
  Receipt Date: 20111019
  Transmission Date: 20120403
  Serious: Yes (Other)
  Sender: FDA-Public Use
  Company Number: US-VERTEX PHARMACEUTICALS INC.-AE-2011-002461

PATIENT
  Sex: Male
  Weight: 91 kg

DRUGS (4)
  1. PEGASYS [Concomitant]
     Indication: HEPATITIS C
     Route: 058
     Dates: start: 20111013, end: 20111017
  2. GLYBURIDE [Concomitant]
     Indication: DIABETES MELLITUS
     Route: 048
  3. INCIVEK [Suspect]
     Indication: HEPATITIS C
     Route: 048
     Dates: start: 20111013, end: 20111017
  4. RIBAVIRIN [Concomitant]
     Indication: HEPATITIS C
     Route: 048
     Dates: start: 20111013, end: 20111017

REACTIONS (5)
  - DYSPNOEA [None]
  - PLATELET COUNT DECREASED [None]
  - CHEST PAIN [None]
  - ASTHENIA [None]
  - LOSS OF CONSCIOUSNESS [None]
